FAERS Safety Report 5015208-4 (Version None)
Quarter: 2006Q2

REPORT INFORMATION
  Report Type: 
  Country: None (occurrence: None)
  Receive Date: 20060425
  Receipt Date: 20060320
  Transmission Date: 20061013
  Serious: Yes (Hospitalization, Other)
  Sender: FDA-Public Use
  Company Number: 222903

PATIENT
  Age: 75 Year
  Sex: Female

DRUGS (6)
  1. XOLAIR [Suspect]
     Indication: ASTHMA LATE ONSET
     Dosage: 375 MG, Q2W, SUBCUTANEOUS
     Route: 058
     Dates: start: 20050418, end: 20060118
  2. ADVAIR DISKUS 100/50 [Concomitant]
  3. COMBIVENT (ALBUTEROL, ALBUTEROL SULFATE, IPRATROPIUM BROMIDE) [Concomitant]
  4. SPORANOX [Concomitant]
  5. TYLENOL SINUS PRODUCT NOS (COLD AND SINUS REMEDIES) [Concomitant]
  6. NEORAL [Concomitant]

REACTIONS (1)
  - RENAL CELL CARCINOMA STAGE UNSPECIFIED [None]
